FAERS Safety Report 13662127 (Version 1)
Quarter: 2017Q2

REPORT INFORMATION
  Report Type: Spontaneous
  Country: US (occurrence: US)
  Receive Date: 20170616
  Receipt Date: 20170616
  Transmission Date: 20170830
  Serious: Yes (Hospitalization)
  Sender: FDA-Public Use
  Company Number: US-ACTELION-A-NJ2017-155313

PATIENT
  Age: 82 Year
  Sex: Female

DRUGS (2)
  1. SILDENAFIL CITRATE. [Concomitant]
     Active Substance: SILDENAFIL CITRATE
  2. VELETRI [Suspect]
     Active Substance: EPOPROSTENOL
     Indication: PULMONARY HYPERTENSION
     Dosage: UNK
     Route: 042

REACTIONS (7)
  - General physical health deterioration [Unknown]
  - Oxygen saturation abnormal [Unknown]
  - Syncope [Unknown]
  - Condition aggravated [Unknown]
  - Dyspnoea [Unknown]
  - Pulmonary veno-occlusive disease [Unknown]
  - Cyanosis [Unknown]
